FAERS Safety Report 7830136-4 (Version None)
Quarter: 2011Q4

REPORT INFORMATION
  Report Type: 
  Country: None (occurrence: None)
  Receive Date: 20111019
  Receipt Date: 20111004
  Transmission Date: 20120403
  Serious: Yes (Hospitalization)
  Sender: FDA-Public Use
  Company Number: THQ2011A04560

PATIENT
  Age: 60 Year
  Sex: Male

DRUGS (2)
  1. UNSPECIFIED MEDICATION (ALL OTHER THERAPEUTIC PRODUCTS) [Concomitant]
  2. ACTOS [Suspect]
     Indication: TYPE 2 DIABETES MELLITUS
     Dosage: 30 MG (15 MG,2 IN 1 D)
     Dates: start: 20060101, end: 20070101

REACTIONS (3)
  - FRACTURE [None]
  - INJURY [None]
  - OSTEOPOROSIS [None]
